FAERS Safety Report 6447236-6 (Version None)
Quarter: 2009Q4

REPORT INFORMATION
  Report Type: 
  Country: None (occurrence: None)
  Receive Date: 20091119
  Receipt Date: 20091104
  Transmission Date: 20100525
  Serious: Yes (Life-Threatening, Hospitalization)
  Sender: FDA-Public Use
  Company Number: PHHY2009KR48815

PATIENT
  Age: 48 Year
  Sex: Male

DRUGS (4)
  1. IMATINIB [Suspect]
     Indication: CHRONIC MYELOID LEUKAEMIA
     Dosage: 400 MG DAILY
     Dates: start: 20070501
  2. IMATINIB [Suspect]
     Dosage: 300 MG DAILY
  3. LAMIVUDINE [Concomitant]
     Indication: HEPATITIS B
  4. TACROLIMUS [Concomitant]

REACTIONS (13)
  - ASCITES [None]
  - ASTHENIA [None]
  - CHOLESTASIS [None]
  - COAGULOPATHY [None]
  - GENERAL PHYSICAL HEALTH DETERIORATION [None]
  - HEPATIC CIRRHOSIS [None]
  - HEPATITIS B [None]
  - INFLAMMATION [None]
  - JAUNDICE [None]
  - LIVER TRANSPLANT [None]
  - NAUSEA [None]
  - NECROSIS [None]
  - SPLENOMEGALY [None]
